FAERS Safety Report 4462851-7 (Version None)
Quarter: 2004Q3

REPORT INFORMATION
  Report Type: 
  Country: None (occurrence: None)
  Receive Date: 20040929
  Receipt Date: 20040921
  Transmission Date: 20050211
  Serious: Yes (Death, Other)
  Sender: FDA-Public Use
  Company Number: 04-09-1336

PATIENT
  Age: 64 Year
  Sex: Female

DRUGS (1)
  1. CLOZAPINE [Suspect]
     Indication: SCHIZOPHRENIA, PARANOID TYPE
     Dosage: 300-400MG QD ORAL
     Route: 048
     Dates: start: 20030301, end: 20040801

REACTIONS (3)
  - DECREASED ACTIVITY [None]
  - PNEUMONIA [None]
  - WEIGHT DECREASED [None]
